FAERS Safety Report 22132812 (Version 1)
Quarter: 2023Q1

REPORT INFORMATION
  Report Type: Spontaneous
  Country: US (occurrence: US)
  Receive Date: 20230323
  Receipt Date: 20230323
  Transmission Date: 20230417
  Serious: No
  Sender: FDA-Public Use
  Company Number: US-BEIGENE USA INC-BGN-2023-002124

PATIENT

DRUGS (1)
  1. BRUKINSA [Suspect]
     Active Substance: ZANUBRUTINIB
     Indication: Product used for unknown indication
     Dosage: 160 MILLIGRAM, BID
     Route: 048
     Dates: start: 202301

REACTIONS (7)
  - Palpitations [Recovered/Resolved]
  - Mole excision [Recovered/Resolved]
  - COVID-19 [Not Recovered/Not Resolved]
  - Fatigue [Unknown]
  - Abnormal dreams [Unknown]
  - Pyrexia [Not Recovered/Not Resolved]
  - Product dose omission issue [Unknown]

NARRATIVE: CASE EVENT DATE: 20230318
